FAERS Safety Report 10478049 (Version 1)
Quarter: 2014Q3

REPORT INFORMATION
  Report Type: Spontaneous
  Country: US (occurrence: US)
  Receive Date: 20140926
  Receipt Date: 20140926
  Transmission Date: 20150326
  Serious: No
  Sender: FDA-Public Use
  Company Number: US-MYLANLABS-2014S1003887

PATIENT
  Sex: Female
  Weight: 61.24 kg

DRUGS (2)
  1. SIMVASTATIN. [Concomitant]
     Active Substance: SIMVASTATIN
     Indication: BLOOD CHOLESTEROL INCREASED
     Dosage: 10 MG,QD
     Route: 048
  2. ENALAPRIL MALEATE TABLETS, USP [Suspect]
     Active Substance: ENALAPRIL MALEATE
     Indication: BLOOD PRESSURE INCREASED
     Dosage: 10 MG,QD
     Route: 048
     Dates: start: 2004

REACTIONS (3)
  - Muscular weakness [Not Recovered/Not Resolved]
  - Blood pressure increased [Not Recovered/Not Resolved]
  - Drug effect decreased [Not Recovered/Not Resolved]

NARRATIVE: CASE EVENT DATE: 2013
